FAERS Safety Report 16707754 (Version 1)
Quarter: 2019Q3

REPORT INFORMATION
  Report Type: Spontaneous
  Country: US (occurrence: US)
  Receive Date: 20190815
  Receipt Date: 20190815
  Transmission Date: 20191004
  Serious: Yes (Other)
  Sender: FDA-Public Use
  Company Number: US-TAKEDA-2019TUS048126

PATIENT
  Age: 74 Year
  Sex: Female

DRUGS (3)
  1. NINLARO [Suspect]
     Active Substance: IXAZOMIB CITRATE
     Indication: PRODUCT USED FOR UNKNOWN INDICATION
     Dosage: 4 MILLIGRAM
     Route: 048
     Dates: start: 20190715
  2. POMALYST [Suspect]
     Active Substance: POMALIDOMIDE
     Indication: MALIGNANT LYMPHOID NEOPLASM
     Dosage: 2 MILLIGRAM, QD
     Route: 048
     Dates: start: 20190715
  3. POMALYST [Suspect]
     Active Substance: POMALIDOMIDE
     Indication: HAEMATOPOIETIC NEOPLASM

REACTIONS (3)
  - Pruritus [Unknown]
  - Swelling [Unknown]
  - Off label use [Unknown]

NARRATIVE: CASE EVENT DATE: 20190719
